FAERS Safety Report 8289552-1 (Version None)
Quarter: 2012Q2

REPORT INFORMATION
  Report Type: 
  Country: None (occurrence: None)
  Receive Date: 20120417
  Receipt Date: 20120409
  Transmission Date: 20120825
  Serious: Yes (Hospitalization, Other)
  Sender: FDA-Public Use
  Company Number: US-BRISTOL-MYERS SQUIBB COMPANY-16509036

PATIENT
  Sex: Male

DRUGS (2)
  1. VITAMIN E [Interacting]
  2. WARFARIN SODIUM [Suspect]

REACTIONS (3)
  - BALANCE DISORDER [None]
  - DRUG INTERACTION [None]
  - HAEMATOMA [None]
